FAERS Safety Report 8847660 (Version 3)
Quarter: 2013Q3

REPORT INFORMATION
  Report Type: Report from Study
  Country: CN (occurrence: CN)
  Receive Date: 20121018
  Receipt Date: 20130828
  Transmission Date: 20140515
  Serious: Yes (Death, Hospitalization)
  Sender: FDA-Public Use
  Company Number: CN-ROCHE-1146605

PATIENT
  Age: 74 Year
  Sex: Male
  Weight: 70 kg

DRUGS (8)
  1. RITUXIMAB [Suspect]
     Indication: B-CELL LYMPHOMA
     Route: 041
     Dates: start: 20120108, end: 20120418
  2. VINCRISTINE [Suspect]
     Indication: B-CELL LYMPHOMA
     Route: 041
     Dates: start: 20120109, end: 20120419
  3. CYCLOPHOSPHAMIDE [Suspect]
     Indication: B-CELL LYMPHOMA
     Route: 041
     Dates: start: 20120109, end: 20120419
  4. EPIRUBICIN [Suspect]
     Indication: B-CELL LYMPHOMA
     Route: 041
     Dates: start: 20120109, end: 20120318
  5. HYDROCORTISONE [Suspect]
     Indication: B-CELL LYMPHOMA
     Route: 041
     Dates: start: 20120109, end: 20120423
  6. PIRARUBICIN [Suspect]
     Indication: B-CELL LYMPHOMA
     Route: 065
     Dates: start: 20120131, end: 20120421
  7. AMLODIPINE BESYLATE [Concomitant]
     Indication: HYPERTENSION
     Route: 048
     Dates: start: 1992
  8. INDAPAMIDE [Concomitant]
     Indication: HYPERTENSION
     Route: 048
     Dates: start: 1992

REACTIONS (2)
  - Enteritis [Recovered/Resolved]
  - Intestinal perforation [Fatal]
